FAERS Safety Report 8743651 (Version 2)
Quarter: 2012Q4

REPORT INFORMATION
  Report Type: Report from Study
  Country: CH (occurrence: CH)
  Receive Date: 20120824
  Receipt Date: 20120928
  Transmission Date: 20130627
  Serious: Yes (Hospitalization, Other)
  Sender: FDA-Public Use
  Company Number: CH-ABBOTT-12P-151-0969348-00

PATIENT
  Age: 76 Year
  Sex: Female

DRUGS (15)
  1. HUMIRA 40 MG/ 0.8 ML PRE-FILLED SYRINGE [Suspect]
     Indication: RHEUMATOID ARTHRITIS
     Dates: start: 20101001, end: 20120325
  2. ARAVA [Suspect]
     Indication: RHEUMATOID ARTHRITIS
     Dates: start: 20060120, end: 20120401
  3. ENBREL [Suspect]
     Indication: RHEUMATOID ARTHRITIS
     Dates: start: 20061001, end: 20120325
  4. CEFTRIAXON [Concomitant]
     Indication: PRODUCT USED FOR UNKNOWN INDICATION
     Dates: start: 20120601, end: 20120608
  5. NEBILET [Concomitant]
     Indication: PRODUCT USED FOR UNKNOWN INDICATION
     Dosage: 1-0-0.5-0
  6. METFORMIN [Concomitant]
     Indication: PRODUCT USED FOR UNKNOWN INDICATION
     Dosage: 1-0-1-0
  7. SPIRICORT [Concomitant]
     Indication: PRODUCT USED FOR UNKNOWN INDICATION
     Dosage: 1-0-0-0
  8. FLUIMUCIL BRAUSE [Concomitant]
     Indication: PRODUCT USED FOR UNKNOWN INDICATION
     Dosage: 0-1-0-0
  9. NEXIUM MUPS [Concomitant]
     Indication: PRODUCT USED FOR UNKNOWN INDICATION
     Dosage: 1-0-1-0
  10. SEROQUEL [Concomitant]
     Indication: PRODUCT USED FOR UNKNOWN INDICATION
     Dosage: 0-0-0-1
  11. CALCIMAGNON D3 [Concomitant]
     Indication: PRODUCT USED FOR UNKNOWN INDICATION
     Dosage: 1-0-1-0
  12. MARCOUMAR [Concomitant]
     Indication: PRODUCT USED FOR UNKNOWN INDICATION
     Dosage: post INR, aim 2.0-3.0
  13. SERETIDE [Concomitant]
     Indication: PRODUCT USED FOR UNKNOWN INDICATION
     Dosage: 2-0-2-0
  14. DOSIPIR INHAL [Concomitant]
     Indication: PRODUCT USED FOR UNKNOWN INDICATION
     Dosage: 1-1-1-1
  15. OXYGEN [Concomitant]
     Indication: PRODUCT USED FOR UNKNOWN INDICATION
     Dosage: 3 lpm at night/passive state up to 5 lpm at weightbearing

REACTIONS (20)
  - Drug intolerance [Unknown]
  - Vulvovaginal mycotic infection [Unknown]
  - Folate deficiency [Unknown]
  - PO2 decreased [Unknown]
  - Cataract [Unknown]
  - Drug ineffective [Unknown]
  - Normochromic normocytic anaemia [Unknown]
  - Pulmonary sepsis [Recovered/Resolved]
  - Urinary tract infection [Unknown]
  - Atrial fibrillation [Recovered/Resolved]
  - Stenotrophomonas infection [Unknown]
  - Pneumonia [Recovered/Resolved]
  - Escherichia sepsis [Unknown]
  - Toxic epidermal necrolysis [Unknown]
  - Gastrointestinal haemorrhage [Unknown]
  - Infective exacerbation of chronic obstructive airways disease [Unknown]
  - General physical health deterioration [Unknown]
  - Tendon rupture [Unknown]
  - Dysuria [Unknown]
  - Dysuria [Unknown]
